FAERS Safety Report 6905751-2 (Version None)
Quarter: 2010Q3

REPORT INFORMATION
  Report Type: 
  Country: None (occurrence: None)
  Receive Date: 20100804
  Receipt Date: 20100714
  Transmission Date: 20110219
  Serious: Yes (Hospitalization)
  Sender: FDA-Public Use
  Company Number: US-JNJFOC-20100708589

PATIENT
  Age: 80 Year
  Sex: Female

DRUGS (9)
  1. LEVOFLOXACIN [Suspect]
     Indication: PNEUMONIA
     Dosage: TIME TO ONSET- 3 DAYS. DURATION OF TREATMENT- 7 DAYS
     Route: 065
  2. ENALAPRIL [Suspect]
     Indication: BLOOD PRESSURE
     Route: 065
  3. ENALAPRIL [Suspect]
     Route: 065
  4. CODEINE/GUAIFENESIN [Suspect]
     Indication: COUGH
     Route: 065
  5. ACETAMINOPHEN [Suspect]
     Route: 065
  6. ACETAMINOPHEN [Suspect]
     Indication: COUGH
     Route: 065
  7. HYDROCHLOROTHIAZIDE [Concomitant]
     Indication: PRODUCT USED FOR UNKNOWN INDICATION
     Route: 065
  8. ALENDRONATE SODIUM [Concomitant]
     Indication: PRODUCT USED FOR UNKNOWN INDICATION
     Route: 065
  9. CALCIUM [Concomitant]
     Indication: PRODUCT USED FOR UNKNOWN INDICATION
     Route: 065

REACTIONS (1)
  - PSEUDOMEMBRANOUS COLITIS [None]
